FAERS Safety Report 4580489-8 (Version None)
Quarter: 2005Q1

REPORT INFORMATION
  Report Type: 
  Country: None (occurrence: None)
  Receive Date: 20050214
  Receipt Date: 20040204
  Transmission Date: 20050727
  Serious: No
  Sender: FDA-Public Use
  Company Number: US-GLAXOSMITHKLINE-A0496950A

PATIENT
  Age: 39 Year
  Sex: Male

DRUGS (5)
  1. LAMICTAL [Suspect]
     Indication: BIPOLAR DISORDER
     Dosage: 25MG PER DAY
     Route: 048
     Dates: start: 20030820, end: 20030827
  2. EFFEXOR [Concomitant]
  3. XANAX [Concomitant]
  4. WELLBUTRIN [Concomitant]
     Dosage: 150MG UNKNOWN
     Route: 048
  5. AMBIEN [Concomitant]

REACTIONS (3)
  - DYSPNOEA [None]
  - PALPITATIONS [None]
  - TACHYCARDIA [None]
